FAERS Safety Report 15316203 (Version 1)
Quarter: 2018Q3

REPORT INFORMATION
  Report Type: Spontaneous
  Country: US (occurrence: US)
  Receive Date: 20180824
  Receipt Date: 20180824
  Transmission Date: 20181010
  Serious: Yes (Hospitalization, Other)
  Sender: FDA-Public Use
  Company Number: US-BAYER-2018-154487

PATIENT
  Age: 13 Year
  Sex: Male
  Weight: 52.15 kg

DRUGS (2)
  1. KOGENATE FS [Suspect]
     Active Substance: ANTIHEMOPHILIC FACTOR, HUMAN RECOMBINANT
     Indication: PROPHYLAXIS
     Dosage: UNK
     Dates: start: 201712, end: 201803
  2. HELIXATE FS [Suspect]
     Active Substance: ANTIHEMOPHILIC FACTOR, HUMAN RECOMBINANT
     Indication: PROPHYLAXIS
     Dosage: UNK
     Dates: start: 201803

REACTIONS (4)
  - Muscle haemorrhage [None]
  - Haemorrhage [Not Recovered/Not Resolved]
  - Anti factor VIII antibody positive [None]
  - Drug ineffective [None]

NARRATIVE: CASE EVENT DATE: 201803
